FAERS Safety Report 13644440 (Version 1)
Quarter: 2017Q2

REPORT INFORMATION
  Report Type: Spontaneous
  Country: US (occurrence: US)
  Receive Date: 20170612
  Receipt Date: 20170612
  Transmission Date: 20170830
  Serious: Yes (Other)
  Sender: FDA-Public Use
  Company Number: US-ROCHE-1328800

PATIENT
  Age: 54 Year
  Sex: Male

DRUGS (1)
  1. XELODA [Suspect]
     Active Substance: CAPECITABINE
     Indication: RECTAL CANCER
     Route: 048
     Dates: start: 20131118, end: 20131130

REACTIONS (2)
  - Nausea [Recovered/Resolved]
  - Palmar-plantar erythrodysaesthesia syndrome [Recovered/Resolved]

NARRATIVE: CASE EVENT DATE: 20131130
